FAERS Safety Report 9928765 (Version 1)
Quarter: 2014Q1

REPORT INFORMATION
  Report Type: Spontaneous
  Country: US (occurrence: None)
  Receive Date: 20140221
  Receipt Date: 20140221
  Transmission Date: 20141002
  Serious: Yes (Death, Hospitalization)
  Sender: FDA-Public Use
  Company Number: 2014STPI000062

PATIENT
  Age: 45 Year
  Sex: Male

DRUGS (2)
  1. CYSTARAN [Suspect]
     Indication: CORNEAL DEPOSITS
     Route: 047
     Dates: start: 20131203, end: 20131220
  2. PROCYSBI (CYSTEAMINE BITARTRATE) [Concomitant]

REACTIONS (2)
  - Metastatic malignant melanoma [None]
  - Metastases to central nervous system [None]
